FAERS Safety Report 9004383 (Version 1)
Quarter: 2013Q1

REPORT INFORMATION
  Report Type: Spontaneous
  Country: US (occurrence: None)
  Receive Date: 20130104
  Receipt Date: 20130104
  Transmission Date: 20140127
  Serious: Yes (Other)
  Sender: FDA-Public Use
  Company Number: None

PATIENT
  Age: 19 Year
  Sex: Female

DRUGS (4)
  1. KEPPRA [Suspect]
     Dosage: 1500 MG  BID PO
     Route: 048
  2. KEPPRA [Suspect]
  3. ZONISAMIDE [Concomitant]
  4. BANZEL [Concomitant]

REACTIONS (2)
  - Product substitution issue [None]
  - Drug ineffective [None]
